FAERS Safety Report 25332470 (Version 1)
Quarter: 2025Q2

REPORT INFORMATION
  Report Type: Spontaneous
  Country: GB (occurrence: GB)
  Receive Date: 20250519
  Receipt Date: 20250519
  Transmission Date: 20250717
  Serious: Yes (Other)
  Sender: MYLAN
  Company Number: GB-MHRA-TPP29636197C6282917YC1747125788691

PATIENT
  Age: 69 Year
  Sex: Female
  Weight: 67 kg

DRUGS (12)
  1. DOXAZOSIN [Suspect]
     Active Substance: DOXAZOSIN MESYLATE
     Indication: Ill-defined disorder
     Dosage: 1 MILLIGRAM, QD
     Dates: start: 20250415
  2. LOSARTAN [Concomitant]
     Active Substance: LOSARTAN
     Indication: Ill-defined disorder
     Dosage: 1 DOSAGE FORM, QD (TAKE ONE DAILY)
     Dates: start: 20250312, end: 20250409
  3. INDAPAMIDE [Concomitant]
     Active Substance: INDAPAMIDE
     Indication: Ill-defined disorder
     Dosage: 1 DOSAGE FORM, AM (TAKE ONE EACH MORNING)
     Dates: start: 20250327, end: 20250424
  4. ATENOLOL [Concomitant]
     Active Substance: ATENOLOL
     Indication: Ill-defined disorder
     Dosage: 1 DOSAGE FORM, AM (TAKE ONE EVERY MORNING)
     Dates: start: 20250414
  5. FERROUS SULFATE [Concomitant]
     Active Substance: FERROUS SULFATE
     Indication: Ill-defined disorder
     Dosage: 1 DOSAGE FORM, QD (TAKE ONE ONCE DAILY)
     Dates: start: 20220907, end: 20250512
  6. VAGIFEM [Concomitant]
     Active Substance: ESTRADIOL
     Indication: Ill-defined disorder
     Dosage: 1 DOSAGE FORM, PM (1 PESSARY NIGHTLY FOR 2 WEEKS, THEREAFTER 1 PES...)
     Dates: start: 20220928
  7. LEVOTHYROXINE [Concomitant]
     Active Substance: LEVOTHYROXINE
     Indication: Ill-defined disorder
     Dosage: 1 DOSAGE FORM, QD (ONE TO BE TAKEN DAILY)
     Dates: start: 20240320
  8. OMEPRAZOLE [Concomitant]
     Active Substance: OMEPRAZOLE
     Indication: Ill-defined disorder
     Dosage: 1 DOSAGE FORM, QD (ONE TO BE TAKEN EACH DAY (TAKE AT LEAST 4 HOURS...))
     Dates: start: 20240320
  9. ACETAMINOPHEN [Concomitant]
     Active Substance: ACETAMINOPHEN
     Indication: Ill-defined disorder
  10. ALBUTEROL [Concomitant]
     Active Substance: ALBUTEROL
     Indication: Ill-defined disorder
  11. OLODATEROL HYDROCHLORIDE\TIOTROPIUM BROMIDE MONOHYDRATE [Concomitant]
     Active Substance: OLODATEROL HYDROCHLORIDE\TIOTROPIUM BROMIDE MONOHYDRATE
     Indication: Ill-defined disorder
     Dosage: 2 DOSAGE FORM, QD (TWO PUFFS TO BE INHALED EACH DAY)
     Dates: start: 20241111
  12. AMLODIPINE [Concomitant]
     Active Substance: AMLODIPINE BESYLATE
     Indication: Ill-defined disorder
     Dosage: 1 DOSAGE FORM, AM (TAKE ONE TABLET EACH MORNING)
     Dates: start: 20241115

REACTIONS (6)
  - Arthralgia [Unknown]
  - Swelling face [Unknown]
  - Dyspnoea [Unknown]
  - Cough [Unknown]
  - Influenza like illness [Recovered/Resolved]
  - Pharyngeal swelling [Unknown]

NARRATIVE: CASE EVENT DATE: 20250513
